FAERS Safety Report 13669118 (Version 1)
Quarter: 2017Q2

REPORT INFORMATION
  Report Type: Spontaneous
  Country: US (occurrence: US)
  Receive Date: 20170620
  Receipt Date: 20170620
  Transmission Date: 20170830
  Serious: No
  Sender: FDA-Public Use
  Company Number: US-BAYER-2017-118340

PATIENT
  Age: 39 Year
  Sex: Female
  Weight: 73.97 kg

DRUGS (1)
  1. ALEVE [Suspect]
     Active Substance: NAPROXEN SODIUM
     Indication: PAIN
     Dosage: 1 DF, UNK
     Route: 048
     Dates: start: 20170616, end: 20170617

REACTIONS (2)
  - Product physical issue [Unknown]
  - Poor quality drug administered [Unknown]
